FAERS Safety Report 5071603-9 (Version None)
Quarter: 2006Q3

REPORT INFORMATION
  Report Type: 
  Country: None (occurrence: None)
  Receive Date: 20060804
  Receipt Date: 20060726
  Transmission Date: 20061208
  Serious: Yes (Hospitalization)
  Sender: FDA-Public Use
  Company Number: 2006UW15003

PATIENT
  Age: 30511 Day
  Sex: Female
  Weight: 87.7 kg

DRUGS (2)
  1. PROPOFOL [Suspect]
     Dosage: 27-48 UG/KG/MIN
     Route: 042
     Dates: start: 20060323, end: 20060326
  2. SODIUM NITROPRUSSIDE [Concomitant]
     Route: 042
     Dates: start: 20060323, end: 20060326

REACTIONS (5)
  - ATELECTASIS [None]
  - ENCEPHALOPATHY [None]
  - GENERALISED OEDEMA [None]
  - INTUBATION COMPLICATION [None]
  - PLEURAL EFFUSION [None]
